FAERS Safety Report 6753190-X (Version None)
Quarter: 2010Q2

REPORT INFORMATION
  Report Type: 
  Country: None (occurrence: None)
  Receive Date: 20100603
  Receipt Date: 20100525
  Transmission Date: 20101027
  Serious: Yes (Death)
  Sender: FDA-Public Use
  Company Number: US-PFIZER INC-2010065328

PATIENT
  Age: 21 Year
  Sex: Female

DRUGS (3)
  1. ALPRAZOLAM [Suspect]
     Dosage: UNK
  2. METHADONE [Suspect]
     Dosage: UNK
  3. OXYCODONE [Suspect]
     Dosage: UNK

REACTIONS (1)
  - DRUG TOXICITY [None]
